FAERS Safety Report 4923425-4 (Version None)
Quarter: 2006Q1

REPORT INFORMATION
  Report Type: 
  Country: None (occurrence: None)
  Receive Date: 20060227
  Receipt Date: 20060131
  Transmission Date: 20060701
  Serious: Yes (Other)
  Sender: FDA-Public Use
  Company Number: PHBS2006JP01882

PATIENT
  Age: 28 Year
  Sex: Female

DRUGS (3)
  1. PARLODEL [Suspect]
     Indication: HYPERPROLACTINAEMIA
     Dosage: UNK, UNK
     Dates: start: 20051220, end: 20060131
  2. PHENOBAL [Suspect]
     Dosage: 60 MG/DAY
     Route: 048
     Dates: start: 20050927
  3. ALCOHOL [Concomitant]

REACTIONS (1)
  - DEPRESSED LEVEL OF CONSCIOUSNESS [None]
